FAERS Safety Report 15882517 (Version 3)
Quarter: 2020Q4

REPORT INFORMATION
  Report Type: Spontaneous
  Country: US (occurrence: US)
  Receive Date: 20190129
  Receipt Date: 20201127
  Transmission Date: 20210113
  Serious: No
  Sender: FDA-Public Use
  Company Number: US-LUPIN PHARMACEUTICALS INC.-2018-09183

PATIENT
  Age: 71 Year
  Sex: Female
  Weight: 30.84 kg

DRUGS (1)
  1. GAVILAX [Suspect]
     Active Substance: POLYETHYLENE GLYCOL 3350
     Indication: LAXATIVE SUPPORTIVE CARE
     Dosage: ONCE DAILY(TOTAL 510G IN 2 DAYS)
     Route: 048
     Dates: start: 20181218, end: 20181219

REACTIONS (3)
  - Product substitution issue [Unknown]
  - Abdominal pain upper [Recovered/Resolved]
  - Product taste abnormal [Unknown]

NARRATIVE: CASE EVENT DATE: 20181220
